FAERS Safety Report 10420204 (Version 1)
Quarter: 2014Q3

REPORT INFORMATION
  Report Type: Report from Study
  Country: US (occurrence: None)
  Receive Date: 20140804
  Receipt Date: 20140804
  Transmission Date: 20150326
  Serious: Yes (Hospitalization)
  Sender: FDA-Public Use
  Company Number: 2012US006330

PATIENT
  Age: 57 Year
  Sex: Female
  Weight: 58.5 kg

DRUGS (4)
  1. GLASSIA [Suspect]
     Active Substance: .ALPHA.1-PROTEINASE INHIBITOR HUMAN
     Indication: ALPHA-1 ANTI-TRYPSIN DEFICIENCY
     Dosage: 3660 MG, 1/WEEK, INTRAVENOUS?
     Route: 042
     Dates: start: 201205
  2. XOPENEX (LEVOSALBUTAMOL HYDROCHLORIDE) [Concomitant]
  3. WELCHOL (COLESEVELAM HYDROCHLORIDE) (625 MILLIGRAM, TABLET) (COLESEVELAM HYDROCHLORIDE) [Concomitant]
     Active Substance: COLESEVELAM HYDROCHLORIDE
  4. XANAX [Concomitant]
     Active Substance: ALPRAZOLAM

REACTIONS (34)
  - Productive cough [None]
  - Nasal congestion [None]
  - Heart rate increased [None]
  - Chest discomfort [None]
  - Fatigue [None]
  - Paralysis [None]
  - Lung infection [None]
  - Extrasystoles [None]
  - Arrhythmia [None]
  - Arthralgia [None]
  - Headache [None]
  - Bronchitis [None]
  - Paraesthesia [None]
  - Rash generalised [None]
  - Bradycardia [None]
  - Vision blurred [None]
  - Holmes-Adie pupil [None]
  - Night sweats [None]
  - Hypotension [None]
  - Wheezing [None]
  - Lung disorder [None]
  - Upper-airway cough syndrome [None]
  - Oropharyngeal pain [None]
  - Sinusitis [None]
  - Cough [None]
  - Tremor [None]
  - Hypersensitivity [None]
  - Somnolence [None]
  - Sedation [None]
  - Pneumonia [None]
  - Rhinorrhoea [None]
  - Infection [None]
  - Malaise [None]
  - Dyspnoea [None]

NARRATIVE: CASE EVENT DATE: 201205
